FAERS Safety Report 4375980-3 (Version None)
Quarter: 2004Q2

REPORT INFORMATION
  Report Type: 
  Country: None (occurrence: None)
  Receive Date: 20040609
  Receipt Date: 20040609
  Transmission Date: 20050107
  Serious: Yes (Life-Threatening, Hospitalization)
  Sender: FDA-Public Use
  Company Number: None

PATIENT
  Age: 62 Year
  Sex: Female
  Weight: 58.7 kg

DRUGS (6)
  1. PACLITAXEL [Suspect]
     Indication: CERVIX CARCINOMA
     Dosage: 135 MG/M2 EVERY 3 WE IV
     Route: 042
     Dates: start: 20040305, end: 20040517
  2. CISPLATIN 1 MG /ML BRISTOL MYERS [Suspect]
     Indication: CERVIX CARCINOMA
     Dosage: 50 MG/M2 EVERY 3 WE IV
     Route: 042
     Dates: start: 20040305, end: 20040317
  3. COUMADIN [Concomitant]
  4. ATIVAN [Concomitant]
  5. LEVAQUIN [Concomitant]
  6. AMPICILLIN [Concomitant]

REACTIONS (5)
  - DIZZINESS [None]
  - DYSPNOEA EXERTIONAL [None]
  - EMBOLISM [None]
  - FATIGUE [None]
  - PULMONARY EMBOLISM [None]
